FAERS Safety Report 5746913-X (Version None)
Quarter: 2008Q2

REPORT INFORMATION
  Report Type: 
  Country: None (occurrence: None)
  Receive Date: 20080522
  Receipt Date: 20080428
  Transmission Date: 20081010
  Serious: No
  Sender: FDA-Public Use
  Company Number: US-BOEHRINGER INGELHEIM GMBH, GERMANY-2008-BP-06616BP

PATIENT
  Sex: Male

DRUGS (1)
  1. ATROVENT HFA [Suspect]
     Indication: ASTHMA
     Route: 055
     Dates: start: 20041101

REACTIONS (2)
  - DRY MOUTH [None]
  - DRY THROAT [None]
